FAERS Safety Report 6902327-8 (Version None)
Quarter: 2010Q3

REPORT INFORMATION
  Report Type: 
  Country: None (occurrence: None)
  Receive Date: 20100803
  Receipt Date: 20080514
  Transmission Date: 20110219
  Serious: No
  Sender: FDA-Public Use
  Company Number: US-PFIZER INC-2008042585

PATIENT
  Sex: Female
  Weight: 88.5 kg

DRUGS (4)
  1. LYRICA [Suspect]
     Indication: FIBROMYALGIA
     Route: 048
     Dates: start: 20080401
  2. ALEVE (CAPLET) [Concomitant]
     Indication: PAIN
  3. IBUPROFEN [Concomitant]
     Indication: PAIN
  4. TYLENOL [Concomitant]
     Indication: PAIN

REACTIONS (2)
  - BLOOD CHOLESTEROL INCREASED [None]
  - DIPLOPIA [None]
